FAERS Safety Report 7407631-5 (Version None)
Quarter: 2011Q2

REPORT INFORMATION
  Report Type: 
  Country: None (occurrence: None)
  Receive Date: 20110405
  Receipt Date: 20110329
  Transmission Date: 20111010
  Serious: Yes (Hospitalization)
  Sender: FDA-Public Use
  Company Number: 2010SP062553

PATIENT
  Age: 84 Year
  Sex: Male
  Weight: 66 kg

DRUGS (3)
  1. DEXAMETHASONE [Suspect]
     Indication: MYOCARDIAL INFARCTION
     Dosage: 40 MG; ; PO
     Route: 048
     Dates: start: 20100831
  2. VELCADE [Suspect]
     Indication: MULTIPLE MYELOMA
     Dosage: 2.3 MG; BIW; IV
     Route: 042
     Dates: start: 20100831, end: 20101012
  3. ASPIRIN [Concomitant]

REACTIONS (5)
  - DISORIENTATION [None]
  - ORTHOSTATIC HYPOTENSION [None]
  - DIZZINESS [None]
  - SQUAMOUS CELL CARCINOMA [None]
  - AUTONOMIC NEUROPATHY [None]
